FAERS Safety Report 25185847 (Version 1)
Quarter: 2025Q2

REPORT INFORMATION
  Report Type: Spontaneous
  Country: AT (occurrence: AT)
  Receive Date: 20250410
  Receipt Date: 20250410
  Transmission Date: 20250716
  Serious: Yes (Death)
  Sender: MERCK SHARP AND DOHME
  Company Number: AT-009507513-2271787

PATIENT
  Age: 60 Year
  Sex: Male

DRUGS (2)
  1. PEMBROLIZUMAB [Suspect]
     Active Substance: PEMBROLIZUMAB
  2. OLAPARIB [Suspect]
     Active Substance: OLAPARIB

REACTIONS (3)
  - Immune-mediated lung disease [Fatal]
  - Off label use [Unknown]
  - Multiple organ dysfunction syndrome [Fatal]
